FAERS Safety Report 8258464 (Version 3)
Quarter: 2013Q2

REPORT INFORMATION
  Report Type: Spontaneous
  Country: CA (occurrence: CA)
  Receive Date: 20111122
  Receipt Date: 20130417
  Transmission Date: 20140414
  Serious: Yes (Other)
  Sender: FDA-Public Use
  Company Number: CA-PFIZER INC-2011281948

PATIENT
  Sex: Female

DRUGS (3)
  1. LYRICA [Suspect]
     Indication: SPINAL COLUMN STENOSIS
     Dosage: 2X50 MG, 2X/DAY
     Route: 048
     Dates: start: 201102, end: 201104
  2. LYRICA [Suspect]
     Indication: BACK PAIN
  3. OXYCONTIN [Concomitant]
     Dosage: UNK
     Dates: start: 2007

REACTIONS (5)
  - Loose tooth [Not Recovered/Not Resolved]
  - Enamel anomaly [Not Recovered/Not Resolved]
  - Tooth discolouration [Not Recovered/Not Resolved]
  - Gingival erosion [Not Recovered/Not Resolved]
  - Abscess oral [Not Recovered/Not Resolved]
